FAERS Safety Report 11658969 (Version 1)
Quarter: 2015Q4

REPORT INFORMATION
  Report Type: Spontaneous
  Country: SE (occurrence: SE)
  Receive Date: 20151026
  Receipt Date: 20151026
  Transmission Date: 20160304
  Serious: Yes (Hospitalization)
  Sender: FDA-Public Use
  Company Number: SE-ELI_LILLY_AND_COMPANY-SE201510006535

PATIENT
  Age: 20 Year
  Sex: Female

DRUGS (5)
  1. ZYPREXA [Suspect]
     Active Substance: OLANZAPINE
     Indication: PRODUCT USED FOR UNKNOWN INDICATION
     Dosage: 70 MG, QD
     Route: 048
     Dates: start: 20150928, end: 20150928
  2. NOZINAN                            /00038601/ [Suspect]
     Active Substance: LEVOMEPROMAZINE
     Indication: PRODUCT USED FOR UNKNOWN INDICATION
     Dosage: 175 MG, QD
     Route: 048
     Dates: start: 20150928, end: 20150928
  3. ALGANEX [Suspect]
     Active Substance: TENOXICAM
     Indication: PRODUCT USED FOR UNKNOWN INDICATION
     Dosage: UNK, UNKNOWN
     Route: 048
     Dates: start: 20150928, end: 20150928
  4. LYRICA [Suspect]
     Active Substance: PREGABALIN
     Indication: PRODUCT USED FOR UNKNOWN INDICATION
     Dosage: 7 DF, QD
     Route: 048
     Dates: start: 20150928, end: 20150928
  5. LAMOTRIGINE. [Suspect]
     Active Substance: LAMOTRIGINE
     Indication: PRODUCT USED FOR UNKNOWN INDICATION
     Dosage: 1.4 G, QD
     Route: 048
     Dates: start: 20150928, end: 20150928

REACTIONS (5)
  - Fatigue [Unknown]
  - Lethargy [Unknown]
  - Toxicity to various agents [Unknown]
  - Intentional self-injury [Unknown]
  - Overdose [Unknown]

NARRATIVE: CASE EVENT DATE: 20150928
